FAERS Safety Report 8886439 (Version 4)
Quarter: 2013Q3

REPORT INFORMATION
  Report Type: Spontaneous
  Country: US (occurrence: US)
  Receive Date: 20121105
  Receipt Date: 20130725
  Transmission Date: 20140515
  Serious: No
  Sender: FDA-Public Use
  Company Number: US-PFIZER INC-2012271902

PATIENT
  Age: 52 Year
  Sex: Male

DRUGS (50)
  1. INLYTA [Suspect]
     Indication: MALIGNANT URINARY TRACT NEOPLASM
     Dosage: 5 MG, 2X/DAY
     Route: 048
     Dates: start: 20120222
  2. INLYTA [Suspect]
     Indication: RENAL CANCER
  3. ATACAND HCT [Concomitant]
     Dosage: 32-25 MG DAILY
     Route: 048
     Dates: start: 20091109
  4. ATACAND HCT [Concomitant]
     Dosage: UNK
     Dates: start: 20120502
  5. DESVENLAFAXINE SUCCINATE [Concomitant]
     Dosage: UNK
     Dates: start: 20120731
  6. ESCITALOPRAM OXALATE [Concomitant]
     Dosage: 20 MG, DAILY FOR 30 DAYS
     Route: 048
     Dates: start: 20120730, end: 20130216
  7. TARKA [Concomitant]
     Dosage: UNK
     Route: 048
     Dates: start: 20120320
  8. ZOLPIDEM TARTRATE [Concomitant]
     Dosage: UNK
     Dates: start: 20130103
  9. CENTRUM [Concomitant]
     Dosage: UNK
     Route: 048
     Dates: start: 2012
  10. ARIPIPRAZOLE [Concomitant]
     Dosage: 5 MG, DAILY FOR 30DAYS
     Route: 048
     Dates: start: 20120920, end: 20121020
  11. VITAMIN B12 [Concomitant]
     Dosage: UNK
     Dates: start: 201011
  12. VITAMIN B12 [Concomitant]
     Dosage: 1000 UG, SINGLE, DAILY FOR 1 DAY
     Dates: start: 20101005, end: 20120125
  13. LASIX [Concomitant]
     Dosage: 40 MG, DAILY FOR 3 DAYS
     Dates: start: 20120111, end: 20120113
  14. LASIX [Concomitant]
     Dosage: 40MG TABLET TAKE AS DIRECTED
     Dates: start: 20120208, end: 20120229
  15. LASIX [Concomitant]
     Dosage: UNK
     Dates: start: 20090601
  16. NORVASC [Concomitant]
     Dosage: 10 MG, DAILY
     Route: 048
     Dates: start: 201011, end: 20120208
  17. NORVASC [Concomitant]
     Dosage: 5 MG, DAILY
     Route: 048
     Dates: start: 20120208, end: 20120229
  18. NORVASC [Concomitant]
     Dosage: UNK
     Dates: start: 20090209
  19. AZITHROMYCIN [Concomitant]
     Dosage: UNK
     Dates: start: 20080613
  20. BYSTOLIC [Concomitant]
     Dosage: UNK
     Dates: start: 20100329
  21. CANDESARTAN CILEXETIL [Concomitant]
     Dosage: UNK
     Dates: start: 20111219
  22. HYDROCHLOROTHIAZIDE [Concomitant]
     Dosage: UNK
     Dates: start: 20111219
  23. CEPHALEXIN [Concomitant]
     Dosage: UNK
     Dates: start: 20071119
  24. HYDROCODONE W/ACETAMINOPHEN [Concomitant]
     Dosage: UNK
     Dates: start: 20071119
  25. HYDROCODONE W/ACETAMINOPHEN [Concomitant]
     Dosage: 7.5-500 MG, TABLET Q 4 TO 6 HOURS PRN
     Route: 048
     Dates: start: 20100118
  26. K-DUR [Concomitant]
     Dosage: UNK
     Dates: start: 20090928
  27. LEVOTHYROXINE SODIUM [Concomitant]
     Dosage: UNK
     Dates: start: 20101005
  28. LEVOTHYROXINE SODIUM [Concomitant]
     Dosage: 112-125MCG (OF 50MCG)
     Route: 048
     Dates: start: 201011
  29. NEXIUM [Concomitant]
     Dosage: 40 MG, DAILY
     Dates: start: 20070822
  30. NEXIUM [Concomitant]
     Dosage: UNK
     Dates: start: 20110606
  31. POTASSIUM CHLORIDE [Concomitant]
     Dosage: UNK
     Dates: start: 20090615
  32. AMBIEN [Concomitant]
     Dosage: 12.5 MG, BEDTIME PRN
     Route: 048
     Dates: start: 20100608, end: 20120905
  33. AMBIEN [Concomitant]
     Dosage: 6.25MG, BEDTIME FOR 30 DAYS PRN
     Route: 048
     Dates: start: 201209, end: 20130321
  34. AMBIEN [Concomitant]
     Dosage: 12.5MG AT BEDTIME FOR 30DAYS
     Route: 048
     Dates: start: 201303
  35. ZYRTEC [Concomitant]
     Dosage: 10 MG, AS NEEDED
     Route: 048
     Dates: start: 20111228
  36. BENZOCAINE [Concomitant]
     Dosage: UNK
     Dates: start: 20080613, end: 20080614
  37. VOTRIENT [Concomitant]
  38. LEXAPRO [Concomitant]
     Dosage: 20MG, DAILY
     Route: 048
     Dates: start: 20080222
  39. ROSUVASTATIN CALCIUM [Concomitant]
     Dosage: UNK
     Dates: start: 20130214
  40. VIAGRA [Concomitant]
     Dosage: UNK
     Dates: start: 20130129
  41. DOXAZOSIN [Concomitant]
     Dosage: 8 MG AT BEDTIME
     Route: 048
  42. TRIPLE MIX [Concomitant]
     Dosage: UNK
     Dates: start: 201304
  43. STOOL SOFTENER [Concomitant]
     Dosage: UNK
     Dates: start: 201201
  44. FLUVIRIN [Concomitant]
     Dosage: 0.5 ML, ONCE OVER 1 DOSES
     Route: 030
     Dates: start: 20101005, end: 20130129
  45. GELCLAIR [Concomitant]
     Dosage: UNK
     Dates: start: 20071022
  46. KENALOG IN ORABASE [Concomitant]
     Dosage: UNK
     Dates: start: 20071022
  47. LEVAQUIN [Concomitant]
     Dosage: 500 MG, DAILY FOR 10DAYS
     Dates: start: 20110617
  48. NYSTATIN [Concomitant]
     Dosage: UNK
     Dates: start: 20071027
  49. SUTENT [Concomitant]
     Dosage: 50 MG, DAILY FOR 28 DAYS
     Dates: start: 20100517
  50. SUTENT [Concomitant]
     Dosage: UNK
     Dates: start: 20090626

REACTIONS (6)
  - Ageusia [Recovered/Resolved]
  - Swollen tongue [Recovered/Resolved]
  - Tongue exfoliation [Recovered/Resolved]
  - Oral candidiasis [Recovered/Resolved]
  - Tongue discolouration [Recovered/Resolved]
  - Glossodynia [Recovered/Resolved]
